FAERS Safety Report 5397615-3 (Version None)
Quarter: 2007Q3

REPORT INFORMATION
  Report Type: 
  Country: None (occurrence: None)
  Receive Date: 20070723
  Receipt Date: 20070723
  Transmission Date: 20080115
  Serious: No
  Sender: FDA-Public Use
  Company Number: None

PATIENT
  Sex: Male
  Weight: 87.0906 kg

DRUGS (1)
  1. AVANDIA [Suspect]
     Indication: TYPE 2 DIABETES MELLITUS
     Dosage: 4 MG TWICE A DAY
     Dates: start: 20020101, end: 20070508

REACTIONS (4)
  - LIBIDO DECREASED [None]
  - MOVEMENT DISORDER [None]
  - MUSCLE SPASMS [None]
  - WEIGHT LOSS POOR [None]
